FAERS Safety Report 7682267-X (Version None)
Quarter: 2011Q3

REPORT INFORMATION
  Report Type: 
  Country: None (occurrence: None)
  Receive Date: 20110805
  Receipt Date: 20110802
  Transmission Date: 20111222
  Serious: Yes (Other)
  Sender: FDA-Public Use
  Company Number: 2011SP036175

PATIENT
  Age: 40 Year
  Sex: Female

DRUGS (2)
  1. REMERON [Suspect]
     Indication: DEPRESSION
     Dosage: 15 MG;QD;PO
     Route: 048
     Dates: start: 20110709, end: 20110714
  2. PAXIL (PAROXETINE HYDROCHLORID HYDRATE) [Concomitant]

REACTIONS (3)
  - CARDIAC FAILURE [None]
  - FACE OEDEMA [None]
  - WEIGHT INCREASED [None]
